FAERS Safety Report 7778204-X (Version None)
Quarter: 2011Q3

REPORT INFORMATION
  Report Type: 
  Country: None (occurrence: None)
  Receive Date: 20110926
  Receipt Date: 20110914
  Transmission Date: 20111222
  Serious: Yes (Other)
  Sender: FDA-Public Use
  Company Number: US-MERCK-1108USA01582

PATIENT
  Age: 68 Year
  Sex: Female
  Weight: 55 kg

DRUGS (3)
  1. [THERAPY UNSPECIFIED] [Concomitant]
     Indication: HYPERTENSION
     Route: 048
  2. FOSAMAX [Suspect]
     Indication: OSTEOPOROSIS
     Route: 048
     Dates: start: 20050101, end: 20090101
  3. [THERAPY UNSPECIFIED] [Concomitant]
     Indication: HYPERCHOLESTEROLAEMIA
     Route: 048

REACTIONS (21)
  - CERUMEN IMPACTION [None]
  - OSTEOMYELITIS [None]
  - STRESS [None]
  - OSTEOARTHRITIS [None]
  - ARTHRALGIA [None]
  - INFECTION [None]
  - ANXIETY [None]
  - ARTHRITIS [None]
  - DEEP VEIN THROMBOSIS [None]
  - VAGINITIS BACTERIAL [None]
  - VULVOVAGINAL PRURITUS [None]
  - TOOTH ABSCESS [None]
  - PHLEBITIS SUPERFICIAL [None]
  - DRUG HYPERSENSITIVITY [None]
  - CATHETER SITE INFECTION [None]
  - DENTAL CARIES [None]
  - ORAL INFECTION [None]
  - OSTEONECROSIS OF JAW [None]
  - ACROCHORDON [None]
  - DEPRESSION [None]
  - FISTULA DISCHARGE [None]
